FAERS Safety Report 10732457 (Version 1)
Quarter: 2015Q1

REPORT INFORMATION
  Report Type: Spontaneous
  Country: IT (occurrence: None)
  Receive Date: 20150120
  Receipt Date: 20150120
  Transmission Date: 20150721
  Serious: Yes (Hospitalization, Other)
  Sender: FDA-Public Use
  Company Number: ADR-2015-00080

PATIENT
  Age: 42 Year
  Sex: Male

DRUGS (5)
  1. BACLOFEN INTRATHECAL [Suspect]
     Active Substance: BACLOFEN
     Indication: MUSCLE SPASTICITY
     Dosage: 75MG/DAY, ORAL?
     Route: 048
  2. ATENOLOL. [Suspect]
     Active Substance: ATENOLOL
     Dosage: 100MG/DAY, ORAL
     Route: 048
     Dates: end: 20100503
  3. TRAMADOL [Suspect]
     Active Substance: TRAMADOL
  4. ZICONITIDE [Suspect]
     Active Substance: ZICONOTIDE
     Indication: PAIN
  5. PREGABALIN. [Suspect]
     Active Substance: PREGABALIN
     Route: 048
     Dates: end: 20100503

REACTIONS (8)
  - No therapeutic response [None]
  - Somnolence [None]
  - Extraskeletal ossification [None]
  - Cognitive disorder [None]
  - Arthralgia [None]
  - Status epilepticus [None]
  - Infection [None]
  - Condition aggravated [None]

NARRATIVE: CASE EVENT DATE: 20100101
